FAERS Safety Report 5051466-8 (Version None)
Quarter: 2006Q3

REPORT INFORMATION
  Report Type: 
  Country: None (occurrence: None)
  Receive Date: 20060714
  Receipt Date: 20060711
  Transmission Date: 20061208
  Serious: Yes (Life-Threatening)
  Sender: FDA-Public Use
  Company Number: 2006CG01209

PATIENT
  Age: 26 Year
  Sex: Female

DRUGS (4)
  1. ZOMIGORO [Suspect]
     Indication: MIGRAINE
     Route: 048
     Dates: start: 20060625, end: 20060625
  2. JASMINE [Concomitant]
     Route: 048
  3. IBUPROFEN [Concomitant]
     Indication: MIGRAINE
  4. PARACETAMOL [Concomitant]
     Indication: MIGRAINE

REACTIONS (4)
  - COMA [None]
  - HEART RATE INCREASED [None]
  - LOSS OF CONSCIOUSNESS [None]
  - PARAESTHESIA [None]
